FAERS Safety Report 20479953 (Version 1)
Quarter: 2022Q1

REPORT INFORMATION
  Report Type: Other
  Country: EG (occurrence: None)
  Receive Date: 20220216
  Receipt Date: 20220216
  Transmission Date: 20220423
  Serious: Yes (Other)
  Sender: FDA-Public Use
  Company Number: EG-ROCHE-3017199

PATIENT
  Age: 31 Year
  Sex: Female

DRUGS (1)
  1. OCREVUS [Suspect]
     Active Substance: OCRELIZUMAB
     Indication: Multiple sclerosis
     Route: 042
     Dates: start: 20190805

REACTIONS (3)
  - Multiple sclerosis [Recovering/Resolving]
  - COVID-19 [Recovering/Resolving]
  - Hypokinesia [Unknown]

NARRATIVE: CASE EVENT DATE: 20220110
